FAERS Safety Report 4329586-2 (Version None)
Quarter: 2004Q2

REPORT INFORMATION
  Report Type: 
  Country: None (occurrence: None)
  Receive Date: 20040401
  Receipt Date: 20040109
  Transmission Date: 20050107
  Serious: Yes (Other)
  Sender: FDA-Public Use
  Company Number: JP-ROCHE-355910

PATIENT
  Age: 57 Year
  Sex: Male

DRUGS (14)
  1. ROCALTROL [Suspect]
     Route: 042
     Dates: start: 20040106, end: 20040108
  2. ROCALTROL [Suspect]
     Indication: HYPERPARATHYROIDISM SECONDARY
     Route: 048
     Dates: start: 20031202, end: 20040105
  3. ROCALTROL [Suspect]
     Route: 048
     Dates: start: 19960208, end: 19960305
  4. ROCALTROL [Suspect]
     Route: 048
     Dates: start: 19960125, end: 19960207
  5. ROCALTROL [Suspect]
     Route: 048
     Dates: start: 19950223, end: 19951006
  6. CALTAN [Concomitant]
     Route: 048
     Dates: start: 20000815
  7. SEVELAMER HYDROCHLORIDE [Concomitant]
     Route: 048
     Dates: start: 20030717
  8. ZYLORIC [Concomitant]
     Route: 048
     Dates: start: 19940615
  9. NORVASC [Concomitant]
     Indication: HYPERTENSION
     Route: 048
     Dates: start: 19960615
  10. RENIVACE [Concomitant]
     Indication: HYPERTENSION
     Route: 048
     Dates: start: 19970615
  11. VITAMIN D3 [Concomitant]
  12. CALCICOL [Concomitant]
  13. OXAROL [Concomitant]
     Route: 042
     Dates: start: 20030501
  14. ONEALFA [Concomitant]
     Dosage: MULTIPLE THERAPIES. ONE DOSING REGIMEN REPORTED AS 3 PER WEEK.
     Route: 048
     Dates: start: 19960314

REACTIONS (15)
  - ANXIETY [None]
  - BLOOD PRESSURE SYSTOLIC INCREASED [None]
  - BRADYCARDIA [None]
  - COLD SWEAT [None]
  - CYANOSIS [None]
  - DIALYSIS [None]
  - DISCOMFORT [None]
  - FEELING HOT [None]
  - HYPERCALCAEMIA [None]
  - NAUSEA [None]
  - PRURITUS [None]
  - RASH [None]
  - RASH GENERALISED [None]
  - SHOCK [None]
  - VOMITING [None]
